FAERS Safety Report 24465688 (Version 1)
Quarter: 2024Q4

REPORT INFORMATION
  Report Type: Spontaneous
  Country: US (occurrence: US)
  Receive Date: 20241018
  Receipt Date: 20241018
  Transmission Date: 20250115
  Serious: No
  Sender: ROCHE
  Company Number: US-ROCHE-3514166

PATIENT
  Age: 47 Year
  Sex: Female
  Weight: 81.65 kg

DRUGS (11)
  1. XOLAIR [Suspect]
     Active Substance: OMALIZUMAB
     Indication: Chronic spontaneous urticaria
     Dosage: XOLAIR SDV 150MG
     Route: 058
  2. XOLAIR [Suspect]
     Active Substance: OMALIZUMAB
     Dosage: XOLAIR SDV 150MG
     Route: 058
     Dates: start: 20230317, end: 20240129
  3. XOLAIR [Suspect]
     Active Substance: OMALIZUMAB
     Dosage: XOLAIR SDV 150MG
     Route: 058
     Dates: start: 20230725, end: 20240129
  4. XOLAIR [Suspect]
     Active Substance: OMALIZUMAB
     Dosage: XOLAIR SDV 150MG
     Route: 058
     Dates: start: 20240103, end: 20240129
  5. XOLAIR [Suspect]
     Active Substance: OMALIZUMAB
     Dosage: XOLAIR SDV 150MG
     Route: 058
     Dates: start: 20240129, end: 20240129
  6. XOLAIR [Suspect]
     Active Substance: OMALIZUMAB
     Indication: Chronic spontaneous urticaria
     Route: 058
     Dates: start: 20230517
  7. XOLAIR [Suspect]
     Active Substance: OMALIZUMAB
     Route: 058
     Dates: start: 20230927
  8. XOLAIR [Suspect]
     Active Substance: OMALIZUMAB
     Route: 058
     Dates: start: 20231025
  9. XOLAIR [Suspect]
     Active Substance: OMALIZUMAB
     Route: 058
     Dates: start: 20231125
  10. ZYRTEC [Concomitant]
     Active Substance: CETIRIZINE HYDROCHLORIDE
     Indication: Hypersensitivity
     Route: 048
     Dates: start: 20211101
  11. TALTZ [Concomitant]
     Active Substance: IXEKIZUMAB
     Indication: Pustular psoriasis

REACTIONS (3)
  - Jaw cyst [Unknown]
  - Fatigue [Unknown]
  - Cyst [Recovered/Resolved]
